FAERS Safety Report 13596678 (Version 1)
Quarter: 2017Q2

REPORT INFORMATION
  Report Type: Spontaneous
  Country: US (occurrence: US)
  Receive Date: 20170531
  Receipt Date: 20170531
  Transmission Date: 20170830
  Serious: No
  Sender: FDA-Public Use
  Company Number: US-PFIZER INC-2017234297

PATIENT
  Age: 54 Year
  Sex: Male
  Weight: 151.95 kg

DRUGS (3)
  1. LYRICA [Suspect]
     Active Substance: PREGABALIN
     Dosage: 5 HARD CAPSULES, DAILY
  2. LYRICA [Suspect]
     Active Substance: PREGABALIN
     Dosage: 4 HARD CAPSULES, DAILY
  3. LYRICA [Suspect]
     Active Substance: PREGABALIN
     Indication: DIABETIC NEUROPATHY
     Dosage: 3 HARD CAPSULES, DAILY

REACTIONS (2)
  - Drug effect incomplete [Unknown]
  - Drug tolerance increased [Unknown]
